FAERS Safety Report 17878274 (Version 7)
Quarter: 2021Q3

REPORT INFORMATION
  Report Type: Report from Study
  Country: None (occurrence: NL)
  Receive Date: 20200610
  Receipt Date: 20210730
  Transmission Date: 20211014
  Serious: Yes (Other)
  Sender: FDA-Public Use
  Company Number: NL-ABBVIE-20K-114-3356147-00

PATIENT
  Age: 55 Year
  Sex: Female

DRUGS (4)
  1. DUODOPA [Suspect]
     Active Substance: CARBIDOPA\LEVODOPA
     Dosage: MD 8.5, CD 3.6, ED 0.1, CND 2.1 EDN 0.1; 24HRS PER DAY
     Route: 050
  2. ROPINIROL [Concomitant]
     Active Substance: ROPINIROLE
     Indication: PRODUCT USED FOR UNKNOWN INDICATION
  3. DUODOPA [Suspect]
     Active Substance: CARBIDOPA\LEVODOPA
     Indication: PARKINSON^S DISEASE
     Dosage: MD 8.5, CD 3.5, ED 2.0, CND 2.0; 24HRS PER DAY
     Route: 050
     Dates: start: 20180305, end: 20180305
  4. DUODOPA [Suspect]
     Active Substance: CARBIDOPA\LEVODOPA
     Dosage: MD 8.5 ML, CD 3.6 ML/H, ED 2.0 ML, CND 2.1 ML/H EDN 0.1 ML
     Route: 050
     Dates: start: 20180305

REACTIONS (29)
  - Stress [Not Recovered/Not Resolved]
  - Vomiting [Recovered/Resolved]
  - Stoma site erythema [Recovering/Resolving]
  - Weight decreased [Not Recovered/Not Resolved]
  - Anger [Not Recovered/Not Resolved]
  - Inappropriate schedule of product administration [Not Recovered/Not Resolved]
  - Gambling disorder [Not Recovered/Not Resolved]
  - Bradyphrenia [Unknown]
  - Tension [Not Recovered/Not Resolved]
  - Dyskinesia [Not Recovered/Not Resolved]
  - Tremor [Not Recovered/Not Resolved]
  - Personal relationship issue [Not Recovered/Not Resolved]
  - Abnormal dreams [Not Recovered/Not Resolved]
  - Muscle rigidity [Not Recovered/Not Resolved]
  - Joint dislocation [Not Recovered/Not Resolved]
  - Device leakage [Unknown]
  - Dependence [Not Recovered/Not Resolved]
  - Disinhibition [Not Recovered/Not Resolved]
  - Exposure to communicable disease [Unknown]
  - Crying [Not Recovered/Not Resolved]
  - Depressed mood [Recovered/Resolved]
  - Akathisia [Not Recovered/Not Resolved]
  - Fall [Recovered/Resolved with Sequelae]
  - Restlessness [Not Recovered/Not Resolved]
  - Emotional disorder [Not Recovered/Not Resolved]
  - Freezing phenomenon [Not Recovered/Not Resolved]
  - Drug dependence [Not Recovered/Not Resolved]
  - Malaise [Recovered/Resolved]
  - Unevaluable event [Not Recovered/Not Resolved]

NARRATIVE: CASE EVENT DATE: 202003
